FAERS Safety Report 4780622-9 (Version None)
Quarter: 2005Q3

REPORT INFORMATION
  Report Type: 
  Country: None (occurrence: None)
  Receive Date: 20050926
  Receipt Date: 20050912
  Transmission Date: 20060218
  Serious: Yes (Hospitalization, Other)
  Sender: FDA-Public Use
  Company Number: HQWYE970217AUG05

PATIENT
  Age: 75 Year
  Sex: Female
  Weight: 86.71 kg

DRUGS (5)
  1. MYLOTARG [Suspect]
     Indication: ACUTE MYELOID LEUKAEMIA
     Dosage: 16 MG 1X PER 1 DAY, INTRAVENOUS; 16 MG 1X PER 1 DAY, INTRAVENOUS
     Route: 042
     Dates: start: 20050331, end: 20050331
  2. MYLOTARG [Suspect]
     Indication: LEUKAEMIA RECURRENT
     Dosage: 16 MG 1X PER 1 DAY, INTRAVENOUS; 16 MG 1X PER 1 DAY, INTRAVENOUS
     Route: 042
     Dates: start: 20050331, end: 20050331
  3. MYLOTARG [Suspect]
     Indication: ACUTE MYELOID LEUKAEMIA
     Dosage: 16 MG 1X PER 1 DAY, INTRAVENOUS; 16 MG 1X PER 1 DAY, INTRAVENOUS
     Route: 042
     Dates: start: 20050617, end: 20050617
  4. MYLOTARG [Suspect]
     Indication: LEUKAEMIA RECURRENT
     Dosage: 16 MG 1X PER 1 DAY, INTRAVENOUS; 16 MG 1X PER 1 DAY, INTRAVENOUS
     Route: 042
     Dates: start: 20050617, end: 20050617
  5. ACYCLOVIR [Suspect]
     Indication: HERPES VIRUS INFECTION
     Dates: start: 20050401, end: 20050401

REACTIONS (19)
  - ALANINE AMINOTRANSFERASE INCREASED [None]
  - ASPARTATE AMINOTRANSFERASE INCREASED [None]
  - BLOOD ALKALINE PHOSPHATASE INCREASED [None]
  - CARDIOMEGALY [None]
  - CHEST PAIN [None]
  - CHILLS [None]
  - HAEMATOCRIT DECREASED [None]
  - HAEMOGLOBIN DECREASED [None]
  - HERPES VIRUS INFECTION [None]
  - HYPERSENSITIVITY [None]
  - INFUSION RELATED REACTION [None]
  - LIP BLISTER [None]
  - LUNG DISORDER [None]
  - NEUTROPENIC SEPSIS [None]
  - OSTEOPOROSIS [None]
  - PYREXIA [None]
  - RED BLOOD CELL COUNT DECREASED [None]
  - RENAL FAILURE [None]
  - WHITE BLOOD CELL COUNT DECREASED [None]
